FAERS Safety Report 5474227-4 (Version None)
Quarter: 2007Q4

REPORT INFORMATION
  Report Type: 
  Country: None (occurrence: None)
  Receive Date: 20071002
  Receipt Date: 20070613
  Transmission Date: 20080405
  Serious: No
  Sender: FDA-Public Use
  Company Number: US-ASTRAZENECA-2007UW12683

PATIENT
  Age: 74 Year
  Sex: Female
  Weight: 65.3 kg

DRUGS (10)
  1. ARIMIDEX [Suspect]
     Indication: BREAST CANCER
     Route: 048
  2. PLAVIX [Concomitant]
  3. LIPITOR [Concomitant]
  4. CELEBREX [Concomitant]
  5. METFORMIN HCL [Concomitant]
  6. GLYBURIDE [Concomitant]
  7. FOSAMAX [Concomitant]
  8. CLONIDINE [Concomitant]
  9. EVOXAC [Concomitant]
  10. NITROGLYCERIN [Concomitant]

REACTIONS (3)
  - ALOPECIA [None]
  - ILL-DEFINED DISORDER [None]
  - ONYCHOCLASIS [None]
